FAERS Safety Report 10387012 (Version 1)
Quarter: 2014Q3

REPORT INFORMATION
  Report Type: Other
  Country: NL (occurrence: NL)
  Receive Date: 20140815
  Receipt Date: 20140815
  Transmission Date: 20150326
  Serious: Yes (Other)
  Sender: FDA-Public Use
  Company Number: NL-MYLAN-2014M1000870

PATIENT

DRUGS (16)
  1. ACETYLSALICYLZUUR [Concomitant]
     Dosage: 1DD1
     Route: 048
  2. NOVORAPID FLEXPEN INJVLST 100E/ML WWSP 3ML [Concomitant]
     Dosage: VOLGENS SCHEMA
     Route: 058
  3. PREDNISOLON MYLAN 20 MG [Suspect]
     Active Substance: PREDNISOLONE
     Indication: PROPHYLACTIC CHEMOTHERAPY
     Dosage: 1 KEER PER DAG 5 STUK(S)
     Route: 048
     Dates: start: 20140703
  4. LANTUS [Concomitant]
     Active Substance: INSULIN GLARGINE
     Dosage: VOLGENS SCHEMA
     Route: 058
  5. VENLAFAXINE [Concomitant]
     Active Substance: VENLAFAXINE HYDROCHLORIDE
     Dosage: 1DD1
     Route: 048
  6. GEMFIBROZIL TABLET 600MG [Concomitant]
     Dosage: 1DD1
     Route: 048
  7. BUSPIRON TABLET 10MG [Concomitant]
     Dosage: VOLGENS SCHEMA 3,5 TABL PER DAG
     Route: 048
  8. VALACICLOVIR MYLAN TABLET FILMOMHULD 500MG [Concomitant]
     Dosage: 2DD1
     Route: 048
  9. CRESTOR TABLET FILMOMHULD 10MG [Concomitant]
     Dosage: 1DD1
     Route: 048
  10. METOPROLOL [Concomitant]
     Active Substance: METOPROLOL
     Dosage: 1DD1
     Route: 048
  11. SPIRONOLACTON TABLET 25MG [Concomitant]
     Active Substance: SPIRONOLACTONE
     Dosage: 1DD EEN HALVE TABLET
     Route: 048
  12. MONO CEDOCARD RETARD CAPSULE MGA 100MG [Concomitant]
     Active Substance: ISOSORBIDE MONONITRATE
     Dosage: 1DD1
     Route: 048
  13. METFORMINE [Concomitant]
     Active Substance: METFORMIN HYDROCHLORIDE
     Dosage: 2DD1
     Route: 048
  14. COTRIMOXAZOLE [Concomitant]
     Active Substance: SULFAMETHOXAZOLE\TRIMETHOPRIM
     Dosage: 1DD1
     Route: 048
  15. PERINDOPRIL TABLET 4MG (ERBUMINE) [Concomitant]
     Dosage: 1DD1
     Route: 048
  16. OMEPRAZOL ACTAVIS CAPSULE MSR 20MG [Concomitant]
     Dosage: 1DD1
     Route: 048

REACTIONS (1)
  - Parasomnia [Recovered/Resolved]

NARRATIVE: CASE EVENT DATE: 20140710
